FAERS Safety Report 6011738-7 (Version None)
Quarter: 2008Q4

REPORT INFORMATION
  Report Type: 
  Country: None (occurrence: None)
  Receive Date: 20081218
  Receipt Date: 20070628
  Transmission Date: 20090506
  Serious: Yes (Hospitalization)
  Sender: FDA-Public Use
  Company Number: JP-ROCHE-491882

PATIENT
  Sex: Male
  Weight: 38 kg

DRUGS (6)
  1. TAMIFLU [Suspect]
     Route: 048
     Dates: start: 20060202, end: 20060202
  2. MUCOSOLVAN [Suspect]
     Route: 048
     Dates: start: 20060202, end: 20060202
  3. PERIACTIN [Suspect]
     Route: 048
     Dates: start: 20060202, end: 20060202
  4. NOLEPTAN [Suspect]
     Route: 048
     Dates: start: 20060202, end: 20060202
  5. CALONAL [Concomitant]
     Dosage: TAKEN AS NEEDED.
     Route: 048
     Dates: start: 20060202, end: 20060202
  6. 1 CONCOMITANT DRUG [Concomitant]
     Dosage: DRUG REPORTED AS AGENTS FOR COMMON COLD. DOSE FORM REPORTED AS ORAL FORMULATION (NOT OTHERWISE SPEC+
     Route: 048
     Dates: start: 20060201

REACTIONS (1)
  - ALTERED STATE OF CONSCIOUSNESS [None]
